FAERS Safety Report 9354033 (Version 1)
Quarter: 2013Q2

REPORT INFORMATION
  Report Type: Spontaneous
  Country: GB (occurrence: GB)
  Receive Date: 20130618
  Receipt Date: 20130618
  Transmission Date: 20140414
  Serious: Yes (Other)
  Sender: FDA-Public Use
  Company Number: GB-009507513-1306GBR007761

PATIENT
  Age: 58 Year
  Sex: Male
  Weight: 109 kg

DRUGS (5)
  1. LOSARTAN POTASSIUM [Suspect]
     Indication: MYOCARDIAL INFARCTION
     Dosage: 50 MG, UNK
     Route: 048
     Dates: start: 20130124, end: 20130408
  2. ASPIRIN [Concomitant]
  3. CLOPIDOGREL [Concomitant]
  4. OMACOR [Concomitant]
  5. OMEGA-3 [Concomitant]

REACTIONS (1)
  - Confusional state [Recovered/Resolved]
